FAERS Safety Report 7077420-2 (Version None)
Quarter: 2010Q4

REPORT INFORMATION
  Report Type: 
  Country: None (occurrence: None)
  Receive Date: 20101101
  Receipt Date: 20100713
  Transmission Date: 20110411
  Serious: Yes (Other)
  Sender: FDA-Public Use
  Company Number: FR-GENZYME-FABR-1001391

PATIENT
  Sex: Male
  Weight: 69 kg

DRUGS (2)
  1. FABRAZYME [Suspect]
     Indication: FABRY'S DISEASE
     Dosage: 0.5 MG/KG, Q3W
     Route: 042
     Dates: start: 20091001
  2. FABRAZYME [Suspect]
     Dosage: 1 MG/KG, Q2W
     Route: 042
     Dates: start: 20070329

REACTIONS (2)
  - DEAFNESS BILATERAL [None]
  - TINNITUS [None]
